FAERS Safety Report 12917442 (Version 1)
Quarter: 2016Q4

REPORT INFORMATION
  Report Type: Spontaneous
  Country: US (occurrence: US)
  Receive Date: 20161107
  Receipt Date: 20161107
  Transmission Date: 20170207
  Serious: No
  Sender: FDA-Public Use
  Company Number: US-ASTRAZENECA-2016SF13311

PATIENT
  Age: 697 Month
  Sex: Female
  Weight: 104.3 kg

DRUGS (5)
  1. BYDUREON [Suspect]
     Active Substance: EXENATIDE
     Indication: TYPE 2 DIABETES MELLITUS
     Route: 058
     Dates: start: 201609
  2. GLIMIPIRIDE [Concomitant]
     Active Substance: GLIMEPIRIDE
     Route: 048
  3. METFORMIN [Concomitant]
     Active Substance: METFORMIN HYDROCHLORIDE
     Route: 048
  4. BABY ASPIRIN [Concomitant]
     Active Substance: ASPIRIN
     Dosage: DAILY
     Route: 048
  5. MULTIPLE VITAMIN [Concomitant]
     Active Substance: VITAMINS
     Dosage: AS REQUIRED

REACTIONS (3)
  - Injection site mass [Recovering/Resolving]
  - Injection site pruritus [Not Recovered/Not Resolved]
  - Neck mass [Recovering/Resolving]

NARRATIVE: CASE EVENT DATE: 201609
